FAERS Safety Report 8478799-7 (Version None)
Quarter: 2012Q2

REPORT INFORMATION
  Report Type: 
  Country: None (occurrence: None)
  Receive Date: 20120629
  Receipt Date: 20120622
  Transmission Date: 20120825
  Serious: Yes (Other)
  Sender: FDA-Public Use
  Company Number: BR-ROCHE-1070228

PATIENT
  Sex: Female
  Weight: 52 kg

DRUGS (6)
  1. CORUS H [Concomitant]
  2. DIVELOL [Concomitant]
  3. METFORMIN HYDROCHLORIDE [Concomitant]
  4. ISOSORBIDE MONONITRATE [Concomitant]
  5. MABTHERA [Suspect]
     Indication: PRODUCT USED FOR UNKNOWN INDICATION
     Route: 042
     Dates: start: 20100801
  6. ARAVA [Concomitant]

REACTIONS (5)
  - DIABETES MELLITUS [None]
  - SOMNOLENCE [None]
  - HEADACHE [None]
  - PLATELET COUNT DECREASED [None]
  - DENGUE FEVER [None]
